FAERS Safety Report 21212888 (Version 1)
Quarter: 2022Q3

REPORT INFORMATION
  Report Type: Spontaneous
  Country: US (occurrence: US)
  Receive Date: 20220815
  Receipt Date: 20220815
  Transmission Date: 20221026
  Serious: Yes (Other)
  Sender: FDA-Public Use
  Company Number: US-TASMAN PHARMA, INC.-2022TSM00108

PATIENT
  Age: 37 Year
  Sex: Female

DRUGS (2)
  1. CLOZAPINE [Suspect]
     Active Substance: CLOZAPINE
     Dosage: 350 MG
     Route: 065
  2. CLOZAPINE [Suspect]
     Active Substance: CLOZAPINE
     Dosage: 500 UNK
     Route: 065

REACTIONS (2)
  - Oculogyric crisis [Recovered/Resolved]
  - Akathisia [Unknown]
